FAERS Safety Report 4917019-4 (Version None)
Quarter: 2006Q1

REPORT INFORMATION
  Report Type: 
  Country: None (occurrence: None)
  Receive Date: 20060221
  Receipt Date: 20060127
  Transmission Date: 20060701
  Serious: Yes (Other)
  Sender: FDA-Public Use
  Company Number: PHBS2006BR01647

PATIENT
  Age: 29 Year
  Sex: Female
  Weight: 53 kg

DRUGS (6)
  1. TOFRANIL [Suspect]
     Indication: EMOTIONAL DISORDER
     Dosage: 50 MG/DAY
     Route: 048
     Dates: end: 20060107
  2. TOFRANIL [Suspect]
     Dosage: 25 MG, QD
     Route: 048
     Dates: start: 20051101
  3. TOFRANIL [Suspect]
     Dosage: 25 MG, BID
     Route: 048
     Dates: start: 20060127
  4. TOFRANIL [Suspect]
     Dosage: 25 MG, QD
     Route: 048
  5. TOFRANIL [Suspect]
     Dosage: 25 MG/DAY ON ALTERNATE DAYS
     Route: 048
  6. PAVALIX [Concomitant]

REACTIONS (8)
  - AGGRESSION [None]
  - ANXIETY [None]
  - BURNING SENSATION [None]
  - CHEST DISCOMFORT [None]
  - DRUG WITHDRAWAL SYNDROME [None]
  - FATIGUE [None]
  - FEAR [None]
  - SUICIDAL IDEATION [None]
